FAERS Safety Report 9181669 (Version 2)
Quarter: 2013Q2

REPORT INFORMATION
  Report Type: Spontaneous
  Country: DE (occurrence: DE)
  Receive Date: 20130322
  Receipt Date: 20130415
  Transmission Date: 20140414
  Serious: Yes (Death)
  Sender: FDA-Public Use
  Company Number: DE-SANOFI-AVENTIS-2013SA029719

PATIENT
  Age: 77 Year
  Sex: Male
  Weight: 85 kg

DRUGS (8)
  1. MULTAQ [Suspect]
     Indication: ATRIAL FIBRILLATION
     Route: 048
     Dates: start: 20130226, end: 20130318
  2. MULTAQ [Suspect]
     Indication: ATRIAL FIBRILLATION
     Route: 048
     Dates: start: 20130226, end: 20130318
  3. BISOPROLOL FUMARATE [Concomitant]
     Indication: CORONARY ARTERY DISEASE
     Route: 048
     Dates: end: 201303
  4. TORASEMIDE [Concomitant]
     Route: 048
     Dates: end: 201303
  5. LORZAAR [Concomitant]
     Indication: CORONARY ARTERY DISEASE
     Route: 048
     Dates: end: 201303
  6. EUTHYROX [Concomitant]
     Route: 048
     Dates: end: 201303
  7. ALLO [Concomitant]
     Route: 048
     Dates: end: 201303
  8. MARCUPHEN [Concomitant]
     Indication: ATRIAL FIBRILLATION
     Dosage: ACC. TO INR, THERAPEUTICALLY 2.0 - 3.0
     Route: 048
     Dates: end: 201303

REACTIONS (1)
  - Death [Fatal]
